FAERS Safety Report 23888811 (Version 1)
Quarter: 2024Q2

REPORT INFORMATION
  Report Type: Spontaneous
  Country: US (occurrence: US)
  Receive Date: 20240523
  Receipt Date: 20240523
  Transmission Date: 20240716
  Serious: Yes (Death, Other)
  Sender: FDA-Public Use
  Company Number: US-AUROBINDO-AUR-APL-2024-024336

PATIENT
  Age: 44 Year
  Sex: Male

DRUGS (2)
  1. CLOZAPINE [Suspect]
     Active Substance: CLOZAPINE
     Indication: Schizotypal personality disorder
     Dosage: 200 MILLIGRAM, EVERY MORNING
     Route: 048
  2. CLOZAPINE [Suspect]
     Active Substance: CLOZAPINE
     Indication: Schizotypal personality disorder
     Dosage: 400 MILLIGRAM, DAILY (400MG IN EVENING)
     Route: 048

REACTIONS (1)
  - Myocardial infarction [Fatal]
